FAERS Safety Report 19183343 (Version 3)
Quarter: 2022Q3

REPORT INFORMATION
  Report Type: Spontaneous
  Country: CA (occurrence: CA)
  Receive Date: 20210427
  Receipt Date: 20220912
  Transmission Date: 20221026
  Serious: Yes (Life-Threatening, Hospitalization, Other)
  Sender: FDA-Public Use
  Company Number: CA-BRISTOL-MYERS SQUIBB COMPANY-BMS-2021-038347

PATIENT
  Age: 65 Year
  Sex: Male
  Weight: 70 kg

DRUGS (16)
  1. ELIQUIS [Suspect]
     Active Substance: APIXABAN
     Indication: Deep vein thrombosis
     Route: 048
     Dates: start: 20201208
  2. ELIQUIS [Suspect]
     Active Substance: APIXABAN
     Route: 048
  3. ASPIRIN [Concomitant]
     Active Substance: ASPIRIN
     Indication: Product used for unknown indication
     Route: 065
     Dates: start: 2009
  4. FRAGMIN [Concomitant]
     Active Substance: DALTEPARIN SODIUM
     Indication: Deep vein thrombosis
     Route: 042
  5. PRAVASTATIN [Concomitant]
     Active Substance: PRAVASTATIN
     Indication: Product used for unknown indication
     Route: 065
  6. PANTOPRAZOLE [Concomitant]
     Active Substance: PANTOPRAZOLE
     Indication: Product used for unknown indication
     Route: 065
  7. ENTRESTO [Concomitant]
     Active Substance: SACUBITRIL\VALSARTAN
     Indication: Product used for unknown indication
     Route: 065
     Dates: start: 20180808
  8. RIVA-METOPROLOL L [Concomitant]
     Indication: Product used for unknown indication
     Route: 048
  9. ACETAMINOPHEN [Concomitant]
     Active Substance: ACETAMINOPHEN
     Indication: Product used for unknown indication
     Route: 065
  10. SYNTHROID [Concomitant]
     Active Substance: LEVOTHYROXINE SODIUM
     Indication: Product used for unknown indication
     Route: 065
  11. MAGNESIUM SULFATE [Concomitant]
     Active Substance: MAGNESIUM SULFATE
     Indication: Product used for unknown indication
     Route: 065
  12. ALIGN [Concomitant]
     Active Substance: BIFIDOBACTERIUM LONGUM SUBSP. INFANTIS
     Indication: Product used for unknown indication
     Route: 065
  13. HEMOVEL [Concomitant]
     Indication: Product used for unknown indication
     Dosage: UNK
     Route: 065
     Dates: start: 20210125
  14. ASPIRIN [Concomitant]
     Active Substance: ASPIRIN
     Indication: Product used for unknown indication
     Route: 065
  15. ANUSOL-HC [HYDROCORTISONE ACETATE] [Concomitant]
     Indication: Product used for unknown indication
     Route: 065
  16. SACUBITRIL\VALSARTAN [Concomitant]
     Active Substance: SACUBITRIL\VALSARTAN
     Indication: Product used for unknown indication
     Route: 065

REACTIONS (9)
  - Cerebrovascular accident [Unknown]
  - Shock haemorrhagic [Not Recovered/Not Resolved]
  - Haemoperitoneum [Not Recovered/Not Resolved]
  - Splenic vein thrombosis [Not Recovered/Not Resolved]
  - Metastatic malignant melanoma [Not Recovered/Not Resolved]
  - Portal vein thrombosis [Unknown]
  - Adverse event [Unknown]
  - Hospitalisation [Unknown]
  - Prescribed underdose [Unknown]

NARRATIVE: CASE EVENT DATE: 20210205
